FAERS Safety Report 4311127-7 (Version None)
Quarter: 2004Q1

REPORT INFORMATION
  Report Type: 
  Country: None (occurrence: None)
  Receive Date: 20040302
  Receipt Date: 20040216
  Transmission Date: 20041129
  Serious: Yes (Other)
  Sender: FDA-Public Use
  Company Number: M04-INT-017

PATIENT
  Age: 55 Year
  Sex: Male
  Weight: 96 kg

DRUGS (2)
  1. INTEGRILIN [Suspect]
     Indication: ACUTE MYOCARDIAL INFARCTION
     Dosage: 2 MCG/KG/MIN; INTRAVENOUS (NOT OTHERWISE SPECIFIED)
     Route: 042
  2. HEPARIN [Concomitant]

REACTIONS (3)
  - CATHETER SITE DISCHARGE [None]
  - CORONARY ARTERY STENOSIS [None]
  - THROMBOCYTOPENIA [None]
